FAERS Safety Report 7368665-2 (Version None)
Quarter: 2011Q1

REPORT INFORMATION
  Report Type: 
  Country: None (occurrence: None)
  Receive Date: 20110323
  Receipt Date: 20110318
  Transmission Date: 20110831
  Serious: Yes (Hospitalization)
  Sender: FDA-Public Use
  Company Number: DE-ABBOTT-11P-062-0698087-00

PATIENT
  Sex: Female
  Weight: 66 kg

DRUGS (2)
  1. STEROIDS [Concomitant]
     Indication: CROHN'S DISEASE
  2. HUMIRA [Suspect]
     Indication: CROHN'S DISEASE
     Route: 058
     Dates: start: 20091209, end: 20101223

REACTIONS (4)
  - ANAL STENOSIS [None]
  - INTESTINAL STENOSIS [None]
  - ENTEROSTOMY [None]
  - DRUG INEFFECTIVE [None]
